FAERS Safety Report 6676877-6 (Version None)
Quarter: 2010Q2

REPORT INFORMATION
  Report Type: 
  Country: None (occurrence: None)
  Receive Date: 20100412
  Receipt Date: 20100331
  Transmission Date: 20101027
  Serious: Yes (Life-Threatening, Hospitalization)
  Sender: FDA-Public Use
  Company Number: JP-SANOFI-AVENTIS-F01200900981

PATIENT
  Age: 77 Year
  Sex: Male
  Weight: 64 kg

DRUGS (8)
  1. CLOPIDOGREL BISULFATE [Suspect]
     Route: 048
     Dates: start: 20071203, end: 20080703
  2. CLOPIDOGREL BISULFATE [Suspect]
     Route: 048
     Dates: start: 20080711
  3. LIPITOR [Concomitant]
     Route: 048
     Dates: start: 20071218
  4. AMARYL [Concomitant]
     Indication: DIABETES MELLITUS
     Route: 048
     Dates: start: 20071226
  5. FRANDOL [Concomitant]
     Route: 050
  6. SYMMETREL [Concomitant]
     Route: 048
     Dates: start: 20071203
  7. ACHILLEA MILLEFOLIUM AND SENNA ALEXANDRINA LEAF AND SENNA ALEXANDRINA [Concomitant]
     Route: 048
     Dates: start: 20071205
  8. MAGLAX [Concomitant]
     Route: 048
     Dates: start: 20071205

REACTIONS (1)
  - OESOPHAGEAL CARCINOMA [None]
